FAERS Safety Report 5397936-4 (Version None)
Quarter: 2007Q3

REPORT INFORMATION
  Report Type: 
  Country: None (occurrence: None)
  Receive Date: 20070726
  Receipt Date: 20070717
  Transmission Date: 20080115
  Serious: Yes (Hospitalization)
  Sender: FDA-Public Use
  Company Number: US-SANOFI-SYNTHELABO-A03200704579

PATIENT
  Sex: Male
  Weight: 120.2 kg

DRUGS (7)
  1. ELIGARD [Suspect]
     Indication: PROSTATE CANCER
     Route: 058
     Dates: start: 20070702, end: 20070702
  2. SULINDAC [Concomitant]
     Dosage: UNK
     Route: 048
  3. LISINOPRIL [Concomitant]
     Dosage: UNK
     Route: 048
  4. GABAPENTIN [Concomitant]
     Dosage: UNK
     Route: 048
  5. FLOMAX [Concomitant]
     Dosage: UNK
     Route: 048
  6. ASPIRIN [Concomitant]
     Dosage: UNK
     Route: 048
  7. ALLOPURINOL [Concomitant]
     Dosage: UNK
     Route: 048

REACTIONS (5)
  - BONE PAIN [None]
  - JOINT SWELLING [None]
  - LIBIDO DECREASED [None]
  - OEDEMA PERIPHERAL [None]
  - WEIGHT INCREASED [None]
